FAERS Safety Report 13363240 (Version 2)
Quarter: 2017Q1

REPORT INFORMATION
  Report Type: Spontaneous
  Country: US (occurrence: US)
  Receive Date: 20170323
  Receipt Date: 20170328
  Transmission Date: 20170429
  Serious: Yes (Death)
  Sender: FDA-Public Use
  Company Number: US-DUCHESNAY INC.-1064563

PATIENT
  Age: 26 Year
  Sex: Female

DRUGS (6)
  1. PRENATAL VITAMINS (UNSPECIFIED) [Concomitant]
  2. HEROIN [Suspect]
     Active Substance: DIACETYLMORPHINE
  3. SINGULAIR [Concomitant]
     Active Substance: MONTELUKAST SODIUM
  4. DICLEGIS [Suspect]
     Active Substance: DOXYLAMINE SUCCINATE\PYRIDOXINE HYDROCHLORIDE
     Indication: PREGNANCY
     Dates: start: 201701, end: 201701
  5. ALBUTEROL. [Concomitant]
     Active Substance: ALBUTEROL
  6. PREDNISONE. [Concomitant]
     Active Substance: PREDNISONE

REACTIONS (1)
  - Death [Fatal]
